FAERS Safety Report 6332456-1 (Version None)
Quarter: 2009Q3

REPORT INFORMATION
  Report Type: 
  Country: None (occurrence: None)
  Receive Date: 20090827
  Receipt Date: 20090827
  Transmission Date: 20100115
  Serious: Yes (Other)
  Sender: FDA-Public Use
  Company Number: None

PATIENT
  Sex: Male
  Weight: 70.3075 kg

DRUGS (1)
  1. AVELOX [Suspect]
     Indication: PNEUMONIA PRIMARY ATYPICAL
     Dosage: 400 MG ONCE DAILY PO
     Route: 048
     Dates: start: 20090731, end: 20090804

REACTIONS (2)
  - HYPOAESTHESIA [None]
  - PARAESTHESIA [None]
